FAERS Safety Report 17052462 (Version 1)
Quarter: 2019Q4

REPORT INFORMATION
  Report Type: Spontaneous
  Country: US (occurrence: US)
  Receive Date: 20191120
  Receipt Date: 20191120
  Transmission Date: 20200122
  Serious: No
  Sender: FDA-Public Use
  Company Number: US-009507513-1911USA007032

PATIENT
  Age: 60 Year
  Sex: Female

DRUGS (1)
  1. ZOCOR [Suspect]
     Active Substance: SIMVASTATIN
     Dosage: UNK
     Dates: start: 2017

REACTIONS (6)
  - Muscle atrophy [Unknown]
  - Blood creatine phosphokinase increased [Unknown]
  - Confusional state [Unknown]
  - Asthenia [Unknown]
  - Hypotonia [Unknown]
  - Headache [Unknown]

NARRATIVE: CASE EVENT DATE: 201903
